FAERS Safety Report 25675925 (Version 1)
Quarter: 2025Q3

REPORT INFORMATION
  Report Type: Spontaneous
  Country: EU (occurrence: EU)
  Receive Date: 20250813
  Receipt Date: 20250813
  Transmission Date: 20251021
  Serious: Yes (Death, Congenital Anomaly)
  Sender: CURIUM PHARMACEUTICALS
  Company Number: None

PATIENT
  Sex: Male

DRUGS (1)
  1. SODIUM IODIDE I-131 [Suspect]
     Active Substance: SODIUM IODIDE I-131
     Indication: Thyroid cancer
     Route: 065
     Dates: start: 2019, end: 2019

REACTIONS (2)
  - Paternal exposure timing unspecified [Recovered/Resolved]
  - Aortic valve disease [Fatal]

NARRATIVE: CASE EVENT DATE: 20190101
